FAERS Safety Report 14156211 (Version 2)
Quarter: 2018Q1

REPORT INFORMATION
  Report Type: Report from Study
  Country: US (occurrence: US)
  Receive Date: 20171103
  Receipt Date: 20180213
  Transmission Date: 20180508
  Serious: Yes (Hospitalization, Other)
  Sender: FDA-Public Use
  Company Number: US-AMGEN-USASP2017165624

PATIENT
  Sex: Female
  Weight: 88.44 kg

DRUGS (16)
  1. LATANOPROST. [Concomitant]
     Active Substance: LATANOPROST
     Dosage: UNK
     Route: 047
  2. TORSEMIDE. [Concomitant]
     Active Substance: TORSEMIDE
     Dosage: 100 MG, QD
     Route: 048
     Dates: start: 20170619
  3. CALCITRIOL. [Concomitant]
     Active Substance: CALCITRIOL
     Dosage: 0.5 MUG, 3 TIMES/WK
     Route: 048
     Dates: start: 20170105
  4. DORZOLAMIDE AND TIMOLOL [Concomitant]
     Active Substance: DORZOLAMIDE\TIMOLOL
     Dosage: 22.3-6.8 MG/ML
     Route: 047
  5. LOSARTAN. [Concomitant]
     Active Substance: LOSARTAN
     Dosage: 100 MG, (AT BED TIME AS DIRECTED)
     Route: 048
  6. SODIUM BICARBONATE. [Concomitant]
     Active Substance: SODIUM BICARBONATE
     Dosage: 650 MG, BID (2 TABLET)
     Route: 048
  7. PROCRIT [Suspect]
     Active Substance: ERYTHROPOIETIN
     Indication: NEPHROGENIC ANAEMIA
     Dosage: 10000 UNIT, Q2WK
     Route: 058
  8. ASPIRIN EC [Concomitant]
     Active Substance: ASPIRIN
     Dosage: 81 MG, QD
     Route: 048
  9. AMLODIPINE [Concomitant]
     Active Substance: AMLODIPINE BESYLATE
     Dosage: 2.5 MG, QD
     Route: 048
  10. CITALOPRAM [Concomitant]
     Active Substance: CITALOPRAM HYDROBROMIDE
     Dosage: 40 MG, QD
     Route: 048
  11. PRAVASTATIN. [Concomitant]
     Active Substance: PRAVASTATIN
     Dosage: 20 MG, QD
     Route: 048
  12. CARVEDIOL [Concomitant]
     Active Substance: CARVEDILOL
     Dosage: 12.5 MG, BID
     Route: 048
  13. VITAMIN D3 [Concomitant]
     Active Substance: CHOLECALCIFEROL
     Dosage: 2000 UNIT, QD
     Route: 048
  14. CALCIUM 600 + D3 PLUS MINERALS [Concomitant]
     Dosage: (600 MG CALCIUM-800 UNIT-50 MG), QD
     Route: 048
  15. OMEPRAZOLE. [Concomitant]
     Active Substance: OMEPRAZOLE
     Dosage: 40 MG, QD
     Route: 048
  16. SUCRALFATE. [Concomitant]
     Active Substance: SUCRALFATE
     Dosage: 1 G, QID (AS NEEDED)
     Route: 048

REACTIONS (7)
  - Arteriovenous fistula [Recovering/Resolving]
  - Gastrointestinal haemorrhage [Unknown]
  - Pneumonia [Unknown]
  - Hyperparathyroidism secondary [Recovering/Resolving]
  - Oedema [Unknown]
  - Weight increased [Unknown]
  - End stage renal disease [Not Recovered/Not Resolved]

NARRATIVE: CASE EVENT DATE: 2017
